FAERS Safety Report 24455520 (Version 2)
Quarter: 2024Q4

REPORT INFORMATION
  Report Type: Report from Study
  Country: CA (occurrence: CA)
  Receive Date: 20241017
  Receipt Date: 20241018
  Transmission Date: 20250115
  Serious: No
  Sender: ROCHE
  Company Number: CA-ROCHE-3494338

PATIENT
  Sex: Female

DRUGS (24)
  1. RITUXAN [Suspect]
     Active Substance: RITUXIMAB
     Indication: Rheumatoid arthritis
     Dosage: FREQUENCY TEXT:DAY 1,15
     Route: 042
     Dates: start: 20161207, end: 20200915
  2. RITUXAN [Suspect]
     Active Substance: RITUXIMAB
     Dosage: FREQUENCY TEXT:DAY 1,15
     Route: 042
     Dates: start: 20220929
  3. RITUXAN [Suspect]
     Active Substance: RITUXIMAB
     Route: 042
  4. COENZYME Q10 [Concomitant]
     Active Substance: DIETARY SUPPLEMENT\UBIDECARENONE
  5. OMEGA 3 [Concomitant]
     Active Substance: CAPSAICIN
  6. VITAMIN C [Concomitant]
     Active Substance: ASCORBIC ACID
  7. ERGOCALCIFEROL [Concomitant]
     Active Substance: ERGOCALCIFEROL
  8. ACETAMINOPHEN [Concomitant]
     Active Substance: ACETAMINOPHEN
     Indication: Premedication
     Route: 048
     Dates: start: 20161207
  9. ALTACE [Concomitant]
     Active Substance: RAMIPRIL
  10. ATORVASTATIN [Concomitant]
     Active Substance: ATORVASTATIN
  11. AZATHIOPRINE [Concomitant]
     Active Substance: AZATHIOPRINE
  12. CALCIUM [Concomitant]
     Active Substance: CALCIUM
  13. CIPRALEX [Concomitant]
     Active Substance: ESCITALOPRAM OXALATE
  14. CLARITHROMYCIN [Concomitant]
     Active Substance: CLARITHROMYCIN
     Indication: Prophylaxis
  15. DIPHENHYDRAMINE HYDROCHLORIDE [Concomitant]
     Active Substance: DIPHENHYDRAMINE HYDROCHLORIDE
     Indication: Premedication
     Route: 048
     Dates: start: 20161207
  16. FLEXERIL [Concomitant]
     Active Substance: CYCLOBENZAPRINE HYDROCHLORIDE
  17. HYDROCHLOROTHIAZIDE [Concomitant]
     Active Substance: HYDROCHLOROTHIAZIDE
  18. METHOTREXATE [Concomitant]
     Active Substance: METHOTREXATE
  19. NITROFURANTOIN [Concomitant]
     Active Substance: NITROFURANTOIN
     Indication: Cystitis
  20. PREDNISONE [Concomitant]
     Active Substance: PREDNISONE
     Indication: Premedication
     Route: 048
     Dates: start: 20161207
  21. RAMIPRIL [Concomitant]
     Active Substance: RAMIPRIL
  22. RYBELSUS [Concomitant]
     Active Substance: SEMAGLUTIDE
     Indication: Weight control
  23. SYNTHROID [Concomitant]
     Active Substance: LEVOTHYROXINE SODIUM
     Indication: Hypothyroidism
  24. VENTOLIN [Concomitant]
     Active Substance: ALBUTEROL SULFATE

REACTIONS (1)
  - Abdominal discomfort [Recovered/Resolved]
